FAERS Safety Report 5279913-7 (Version None)
Quarter: 2007Q1

REPORT INFORMATION
  Report Type: 
  Country: None (occurrence: None)
  Receive Date: 20070326
  Receipt Date: 20070326
  Transmission Date: 20070707
  Serious: No
  Sender: FDA-Public Use
  Company Number: None

PATIENT
  Age: 44 Year
  Sex: Male
  Weight: 86.1834 kg

DRUGS (1)
  1. LUNESTA [Suspect]
     Indication: INSOMNIA
     Dosage: 1 1 TIME PO
     Route: 048
     Dates: start: 20070310, end: 20070311

REACTIONS (2)
  - DYSGEUSIA [None]
  - ORAL INTAKE REDUCED [None]
